FAERS Safety Report 8028585-7 (Version None)
Quarter: 2012Q1

REPORT INFORMATION
  Report Type: 
  Country: None (occurrence: None)
  Receive Date: 20120104
  Receipt Date: 20111229
  Transmission Date: 20120608
  Serious: Yes (Other)
  Sender: FDA-Public Use
  Company Number: AUR-APL-2011-06331

PATIENT
  Age: 20 Year
  Sex: Female
  Weight: 67 kg

DRUGS (4)
  1. NORGESTIMATE AND ETHINYL ESTRADIOL [Suspect]
     Indication: CONTRACEPTION
  2. PREGABALIN [Suspect]
     Indication: PAIN
     Dosage: 150 MG (75 MG, 2 IN 1 D), ORAL
     Route: 048
     Dates: start: 20111025, end: 20111130
  3. ACETAMINOPHEN W/ CODEINE [Suspect]
     Indication: PAIN
     Dosage: 8 DOSAGE FORMS (2 DOSAGE FORMS, 4 IN 1 D)
  4. NAPROXEN [Suspect]
     Indication: PAIN
     Dosage: 3 DOSAGE FORMS (1 DOSAGE FORMS, 3 IN 1 D), ORAL
     Route: 048
     Dates: start: 20111027, end: 20111205

REACTIONS (2)
  - PREGNANCY ON ORAL CONTRACEPTIVE [None]
  - DRUG INTERACTION [None]
